FAERS Safety Report 9655949 (Version 2)
Quarter: 2013Q4

REPORT INFORMATION
  Report Type: Report from Study
  Country: JP (occurrence: JP)
  Receive Date: 20131030
  Receipt Date: 20131030
  Transmission Date: 20140711
  Serious: Yes (Life-Threatening, Hospitalization, Other)
  Sender: FDA-Public Use
  Company Number: JP-BAYER-2012-131441

PATIENT
  Age: 59 Year
  Sex: Male
  Weight: 50 kg

DRUGS (12)
  1. SORAFENIB (RAF KINASE INHIBITOR) [Suspect]
     Indication: HEPATOCELLULAR CARCINOMA
     Dosage: 200 MG/DAY
     Route: 048
     Dates: start: 20120404, end: 20120417
  2. SORAFENIB (RAF KINASE INHIBITOR) [Suspect]
     Indication: HEPATOCELLULAR CARCINOMA
     Dosage: 200MG/DAY, 400MG/DAY, ALTERNATELY
     Route: 048
     Dates: start: 20120418, end: 20120508
  3. SORAFENIB (RAF KINASE INHIBITOR) [Suspect]
     Indication: HEPATOCELLULAR CARCINOMA
     Dosage: 200 MG/DAY
     Route: 048
     Dates: start: 20120509, end: 20120731
  4. SORAFENIB (RAF KINASE INHIBITOR) [Suspect]
     Indication: HEPATOCELLULAR CARCINOMA
     Dosage: 200 MG/DAY
     Route: 048
     Dates: start: 20120815, end: 20130108
  5. SORAFENIB (RAF KINASE INHIBITOR) [Suspect]
     Indication: HEPATOCELLULAR CARCINOMA
     Dosage: 400 MG/DAY
     Route: 048
     Dates: start: 20130109, end: 20130331
  6. UREPEARL [Concomitant]
     Indication: DRUG TOXICITY PROPHYLAXIS
     Dosage: UNK
     Route: 061
  7. PARIET [Concomitant]
     Indication: PROPHYLAXIS AGAINST GASTROINTESTINAL ULCER
     Dosage: DAILY DOSE 10 MG
     Route: 048
  8. PROMAC [POLAPREZINC] [Concomitant]
     Indication: PROPHYLAXIS AGAINST GASTROINTESTINAL ULCER
     Dosage: DAILY DOSE 150 MG
     Route: 048
     Dates: end: 20120704
  9. LIVACT [Concomitant]
     Dosage: 4.15 G, TID
     Route: 048
  10. CALBLOCK [Concomitant]
     Dosage: DAILY DOSE 16 MG
     Route: 048
     Dates: end: 20130331
  11. OLMETEC [Concomitant]
     Dosage: DAILY DOSE 40 MG
     Route: 048
  12. TRICHLORMETHIAZIDE [Concomitant]
     Dosage: 1 MG
     Route: 048
     Dates: start: 20130109

REACTIONS (12)
  - Soft tissue mass [Recovered/Resolved]
  - Gastric varices haemorrhage [Recovered/Resolved]
  - Palmar-plantar erythrodysaesthesia syndrome [Recovered/Resolved]
  - Diarrhoea [Recovered/Resolved]
  - Hyperuricaemia [Recovered/Resolved]
  - Insomnia [Recovering/Resolving]
  - Palmar-plantar erythrodysaesthesia syndrome [Recovered/Resolved]
  - Oropharyngeal pain [Recovering/Resolving]
  - Pruritus genital [Recovered/Resolved]
  - Decreased appetite [Recovered/Resolved]
  - Ascites [Recovered/Resolved]
  - White blood cell count increased [Recovered/Resolved]
